FAERS Safety Report 13481865 (Version 2)
Quarter: 2017Q3

REPORT INFORMATION
  Report Type: Report from Study
  Country: US (occurrence: US)
  Receive Date: 20170424
  Receipt Date: 20170728
  Transmission Date: 20171127
  Serious: No
  Sender: FDA-Public Use
  Company Number: US-AMGEN-USASL2017032270

PATIENT
  Sex: Female
  Weight: 56.6 kg

DRUGS (1)
  1. REPATHA [Suspect]
     Active Substance: EVOLOCUMAB
     Indication: HYPERCHOLESTEROLAEMIA
     Dosage: 140 MG, Q2WK
     Route: 065
     Dates: start: 20170118

REACTIONS (4)
  - Drug dose omission [Unknown]
  - Rhinorrhoea [Unknown]
  - Bronchitis [Unknown]
  - Throat irritation [Unknown]
